FAERS Safety Report 20434010 (Version 2)
Quarter: 2022Q1

REPORT INFORMATION
  Report Type: Report from Study
  Country: US (occurrence: US)
  Receive Date: 20220205
  Receipt Date: 20220208
  Transmission Date: 20220423
  Serious: No
  Sender: FDA-Public Use
  Company Number: US-NOVARTISTESTPH-NVSC2022US023073

PATIENT
  Sex: Female

DRUGS (1)
  1. XIIDRA [Suspect]
     Active Substance: LIFITEGRAST
     Indication: Dry eye
     Dosage: 1 DRP, BID (GTT)
     Route: 047
     Dates: start: 202109

REACTIONS (3)
  - Eye infection [Recovering/Resolving]
  - Eye swelling [Recovering/Resolving]
  - Swelling of eyelid [Recovering/Resolving]
